FAERS Safety Report 4429673-4 (Version None)
Quarter: 2004Q3

REPORT INFORMATION
  Report Type: 
  Country: None (occurrence: None)
  Receive Date: 20040819
  Receipt Date: 20040707
  Transmission Date: 20050211
  Serious: Yes (Death, Hospitalization, Other)
  Sender: FDA-Public Use
  Company Number: JP-MERCK-0407USA00806

PATIENT
  Age: 27 Year
  Sex: Male
  Weight: 52 kg

DRUGS (12)
  1. COSMEGEN [Suspect]
     Indication: NEUROBLASTOMA
     Route: 042
     Dates: start: 20000808, end: 20000810
  2. COSMEGEN [Suspect]
     Route: 042
     Dates: start: 20000913, end: 20000915
  3. COSMEGEN [Suspect]
     Route: 042
     Dates: start: 20001004, end: 20001006
  4. ADRIACIN [Suspect]
     Indication: NEUROBLASTOMA
     Route: 042
     Dates: start: 20000808, end: 20000810
  5. ADRIACIN [Suspect]
     Route: 042
     Dates: start: 20000913, end: 20000915
  6. ADRIACIN [Suspect]
     Route: 042
     Dates: start: 20001004, end: 20001006
  7. IFOMIDE [Suspect]
     Indication: NEUROBLASTOMA
     Route: 042
     Dates: start: 20000808, end: 20000812
  8. IFOMIDE [Suspect]
     Route: 042
     Dates: start: 20000913, end: 20000917
  9. IFOMIDE [Suspect]
     Route: 042
     Dates: start: 20001004, end: 20001008
  10. ONCOVIN [Suspect]
     Indication: NEUROBLASTOMA
     Route: 042
     Dates: start: 20000808, end: 20000801
  11. ONCOVIN [Suspect]
     Route: 042
     Dates: start: 20001004, end: 20001001
  12. ONCOVIN [Suspect]
     Route: 042
     Dates: start: 20000913, end: 20000901

REACTIONS (5)
  - ANAEMIA [None]
  - BONE MARROW DEPRESSION [None]
  - DISSEMINATED INTRAVASCULAR COAGULATION [None]
  - NEUROBLASTOMA [None]
  - NEUTROPHIL COUNT DECREASED [None]
